FAERS Safety Report 9938155 (Version 2)
Quarter: 2014Q2

REPORT INFORMATION
  Report Type: Spontaneous
  Country: US (occurrence: US)
  Receive Date: 20140303
  Receipt Date: 20140411
  Transmission Date: 20141212
  Serious: Yes (Other)
  Sender: FDA-Public Use
  Company Number: US-JNJFOC-20140212861

PATIENT
  Age: 66 Year
  Sex: Male
  Weight: 92.99 kg

DRUGS (2)
  1. ZYTIGA [Suspect]
     Indication: PROSTATE CANCER
     Route: 048
     Dates: start: 201308, end: 20140216
  2. PREDNISONE [Concomitant]
     Indication: PROSTATE CANCER
     Route: 048
     Dates: start: 2013

REACTIONS (4)
  - Haemorrhage urinary tract [Recovering/Resolving]
  - Chest pain [Recovered/Resolved]
  - Bladder pain [Recovering/Resolving]
  - Prostatic specific antigen increased [Unknown]
